FAERS Safety Report 26177942 (Version 1)
Quarter: 2025Q4

REPORT INFORMATION
  Report Type: Spontaneous
  Country: CA (occurrence: CA)
  Receive Date: 20251219
  Receipt Date: 20251219
  Transmission Date: 20260117
  Serious: Yes (Death, Life-Threatening, Hospitalization, Disabling, Congenital Anomaly, Other)
  Sender: SANDOZ
  Company Number: CA-HALEON-2279395

PATIENT
  Age: 43 Year
  Sex: Female
  Weight: 96 kg

DRUGS (136)
  1. ALENDRONATE SODIUM [Suspect]
     Active Substance: ALENDRONATE SODIUM
     Indication: Rheumatoid arthritis
     Dosage: UNK
     Route: 048
  2. ACETAMINOPHEN [Suspect]
     Active Substance: ACETAMINOPHEN
     Indication: Product used for unknown indication
     Dosage: 10 MG, DOSE FORM: NOT SPECIFIED, ROUTE:  UNKNOWN
     Route: 065
  3. ACETAMINOPHEN AND CODEINE [Suspect]
     Active Substance: ACETAMINOPHEN\CODEINE PHOSPHATE
     Indication: Product used for unknown indication
     Dosage: 20 MG, ROUTE:UNKNOWN
     Route: 065
  4. ACETAMINOPHEN AND CODEINE [Suspect]
     Active Substance: ACETAMINOPHEN\CODEINE PHOSPHATE
     Dosage: UNK, (UNK ROUTE, FORMULATION-UNKNOWN)
     Route: 065
  5. AIMOVIG [Suspect]
     Active Substance: ERENUMAB-AOOE
     Indication: Migraine
     Dosage: UNK, DOSE FORM:SOLUTION ROUTE: UNKNOWN
     Route: 065
  6. CETIRIZINE [Suspect]
     Active Substance: CETIRIZINE HYDROCHLORIDE
     Dosage: 10 MG, QD, 1 EVERY 1 DAYS DOSE FORM: UNKNOWN
     Route: 048
  7. CETIRIZINE [Suspect]
     Active Substance: CETIRIZINE HYDROCHLORIDE
     Dosage: 10 MG, DOSE FORM:UNKNOWN
     Route: 048
  8. CETIRIZINE [Suspect]
     Active Substance: CETIRIZINE HYDROCHLORIDE
     Dosage: 10 MG, DOSE FORM:UNKNOWN
     Route: 048
  9. CETIRIZINE [Suspect]
     Active Substance: CETIRIZINE HYDROCHLORIDE
     Dosage: 25 MG, QD, 1 EVERY 1 DAYS DOSE FORM: UNKNOWN ROUTE:UNKNOWN
     Route: 065
  10. CETIRIZINE [Suspect]
     Active Substance: CETIRIZINE HYDROCHLORIDE
     Indication: Off label use
     Dosage: 25 MG, DOSE FORM: UNKNOWN, ROUTE: UNKNOWN
     Route: 065
  11. CETIRIZINE [Suspect]
     Active Substance: CETIRIZINE HYDROCHLORIDE
     Indication: Rheumatoid arthritis
     Dosage: 25 MG, DOSE FORM:UNKNOWN
     Route: 048
  12. CETIRIZINE [Suspect]
     Active Substance: CETIRIZINE HYDROCHLORIDE
     Dosage: 25 MG, DOSE FORM:UNKNOWN
     Route: 048
  13. CETIRIZINE [Suspect]
     Active Substance: CETIRIZINE HYDROCHLORIDE
     Dosage: UNK, DOSE FORM:UNKNOWN ROUTE: INTRACARDIAC
     Route: 016
  14. CORTISONE [Suspect]
     Active Substance: CORTISONE
     Dosage: 25 MG, ROUTE:UNKNOWN
     Route: 065
  15. CORTISONE [Suspect]
     Active Substance: CORTISONE
     Indication: Rheumatoid arthritis
     Dosage: UNK
     Route: 048
  16. CORTISONE [Suspect]
     Active Substance: CORTISONE
     Dosage: UNK
     Route: 058
  17. CORTISONE [Suspect]
     Active Substance: CORTISONE
     Dosage: UNK
     Route: 058
  18. CORTISONE [Suspect]
     Active Substance: CORTISONE
     Dosage: UNK, DOSE FORM:NOT SPECIFIED ROUTE: UNKNOWN
     Route: 065
  19. CORTISONE [Suspect]
     Active Substance: CORTISONE
     Dosage: UNK, ROUTE:CUTANEOUS
     Route: 003
  20. COSENTYX [Suspect]
     Active Substance: SECUKINUMAB
     Dosage: UNK
     Route: 065
  21. COSENTYX [Suspect]
     Active Substance: SECUKINUMAB
     Indication: Psoriatic arthropathy
     Dosage: UNK, ROUTE:UNKNOWN
     Route: 065
  22. ERELZI [Suspect]
     Active Substance: ETANERCEPT-SZZS
     Dosage: 50 MG, QW, 1 EVERY 1 WEEKS
     Route: 058
  23. ERELZI [Suspect]
     Active Substance: ETANERCEPT-SZZS
     Dosage: 50 MG, QW, 1 EVERY 1 WEEKS DOSE FORM: NOT SPECIFIED
     Route: 058
  24. ERELZI [Suspect]
     Active Substance: ETANERCEPT-SZZS
     Dosage: 50 MG
     Route: 058
  25. ERELZI [Suspect]
     Active Substance: ETANERCEPT-SZZS
     Indication: Rheumatoid arthritis
     Dosage: 50 MG, ROUTE:UNKNOWN
     Route: 065
  26. ERELZI [Suspect]
     Active Substance: ETANERCEPT-SZZS
     Dosage: UNK
     Route: 065
  27. ERELZI [Suspect]
     Active Substance: ETANERCEPT-SZZS
     Dosage: UNK, ROUTE:UNKNOWN
     Route: 065
  28. ENBREL [Suspect]
     Active Substance: ETANERCEPT
     Dosage: 1 DOSAGE FORM, QW, ROUTE:UNKNOWN
     Route: 065
  29. ENBREL [Suspect]
     Active Substance: ETANERCEPT
     Dosage: 20 MG, QW, 1 EVERY 1 WEEKS
     Route: 058
  30. ENBREL [Suspect]
     Active Substance: ETANERCEPT
     Dosage: 20 MG, QD
     Route: 058
  31. ENBREL [Suspect]
     Active Substance: ETANERCEPT
     Dosage: 20 MG
     Route: 058
  32. ENBREL [Suspect]
     Active Substance: ETANERCEPT
     Dosage: 20 MG
     Route: 058
  33. ENBREL [Suspect]
     Active Substance: ETANERCEPT
     Dosage: 25 MG, QD, 1 EVERY 1 DAYS
     Route: 048
  34. ENBREL [Suspect]
     Active Substance: ETANERCEPT
     Dosage: 25 MG, QD, 25MG 1 EVERY 1 DAYS ROUTE: ORAL,
     Route: 048
  35. ENBREL [Suspect]
     Active Substance: ETANERCEPT
     Dosage: 25 MG
     Route: 058
  36. ENBREL [Suspect]
     Active Substance: ETANERCEPT
     Dosage: 40 MG
     Route: 058
  37. ENBREL [Suspect]
     Active Substance: ETANERCEPT
     Dosage: 50 MG, QW, 1 EVERY 1 WEEKS
     Route: 058
  38. ENBREL [Suspect]
     Active Substance: ETANERCEPT
     Dosage: 50 MG, QW, 1 EVERY 1 WEEKS
     Route: 058
  39. ENBREL [Suspect]
     Active Substance: ETANERCEPT
     Dosage: 50 MG, QW, ROUTE:UNKNOWN 1 EVERY 1  WEEKS
     Route: 065
  40. ENBREL [Suspect]
     Active Substance: ETANERCEPT
     Dosage: 50 MG, QD, 1 EVERY 1 DAYS
     Route: 058
  41. ENBREL [Suspect]
     Active Substance: ETANERCEPT
     Dosage: 50 MG
     Route: 058
  42. ENBREL [Suspect]
     Active Substance: ETANERCEPT
     Indication: Rheumatoid arthritis
     Dosage: 90 MG
     Route: 058
  43. ENBREL [Suspect]
     Active Substance: ETANERCEPT
     Dosage: UNK
     Route: 058
  44. ENBREL [Suspect]
     Active Substance: ETANERCEPT
     Dosage: UNK
     Route: 058
  45. ENBREL [Suspect]
     Active Substance: ETANERCEPT
     Dosage: UNK
     Route: 058
  46. ENBREL [Suspect]
     Active Substance: ETANERCEPT
     Indication: Psoriatic arthropathy
     Dosage: UNK
     Route: 065
  47. ENBREL [Suspect]
     Active Substance: ETANERCEPT
     Dosage: UNK, ROUTE:UNKNOWN
     Route: 065
  48. ERENUMAB [Suspect]
     Active Substance: ERENUMAB
     Indication: Migraine
     Dosage: UNK, ROUTE:UNKNOWN
     Route: 065
  49. GOLD [Suspect]
     Active Substance: GOLD
     Indication: Product used for unknown indication
     Dosage: UNK, ROUTE:UNKNOWN
     Route: 065
  50. HYRIMOZ [Suspect]
     Active Substance: ADALIMUMAB-ADAZ
     Dosage: 40 MG
     Route: 048
  51. HYRIMOZ [Suspect]
     Active Substance: ADALIMUMAB-ADAZ
     Indication: Rheumatoid arthritis
     Dosage: 40 MG
     Route: 058
  52. HYRIMOZ [Suspect]
     Active Substance: ADALIMUMAB-ADAZ
     Dosage: 40 MG
     Route: 058
  53. HYRIMOZ [Suspect]
     Active Substance: ADALIMUMAB-ADAZ
     Dosage: 40 MG
     Route: 058
  54. HYRIMOZ [Suspect]
     Active Substance: ADALIMUMAB-ADAZ
     Dosage: 40 MG, DOSE FORM: SOLUTION SUBCUTANEOUS
     Route: 058
  55. HYRIMOZ [Suspect]
     Active Substance: ADALIMUMAB-ADAZ
     Dosage: UNK, ROUTE:UNKNOWN
     Route: 065
  56. LEFLUNOMIDE [Suspect]
     Active Substance: LEFLUNOMIDE
     Dosage: 10 MG, QD, 1 EVERY 1 DAYS DOSE FORM: UNKNOWN ROUTE:UNKNOWN
     Route: 065
  57. LEFLUNOMIDE [Suspect]
     Active Substance: LEFLUNOMIDE
     Dosage: 10 MG, QD, 1 EVERY 1 DAYS DOSE FORM: UNKNOWN ROUTE:UNKNOWN
     Route: 065
  58. LEFLUNOMIDE [Suspect]
     Active Substance: LEFLUNOMIDE
     Indication: Rheumatoid arthritis
     Dosage: 20 MG, QD, 1 EVERY 1 DAYS DOSE FORM: UNKNOWN ROUTE:UNKNOWN
     Route: 065
  59. LEFLUNOMIDE [Suspect]
     Active Substance: LEFLUNOMIDE
     Dosage: 20 MG, DOSE FORM:UNKNOWN
     Route: 048
  60. LEFLUNOMIDE [Suspect]
     Active Substance: LEFLUNOMIDE
     Dosage: 20 MG, DOSE FORM:UNKNOWN
     Route: 048
  61. LEFLUNOMIDE [Suspect]
     Active Substance: LEFLUNOMIDE
     Dosage: 20 MG, DOSE FORM:UNKNOWN
     Route: 048
  62. LEFLUNOMIDE [Suspect]
     Active Substance: LEFLUNOMIDE
     Dosage: 20 MG, FORMULATION: TABLET
     Route: 048
  63. LEFLUNOMIDE [Suspect]
     Active Substance: LEFLUNOMIDE
     Dosage: UNK, DOSE FORM:UNKNOWN ROUTE: UNKNOWN
     Route: 065
  64. METHOTREXATE [Suspect]
     Active Substance: METHOTREXATE
     Dosage: 1 G, 1 EVERY 1 DAYS DOSE FORM: UNKNOWN
     Route: 048
  65. METHOTREXATE [Suspect]
     Active Substance: METHOTREXATE
     Dosage: 1 G, 1 EVERY 1 DAYS DOSE FORM: UNKNOWN ROUTE:ORAL
     Route: 048
  66. METHOTREXATE [Suspect]
     Active Substance: METHOTREXATE
     Dosage: 1 G, DOSE FORM:UNKNOWN
     Route: 048
  67. METHOTREXATE [Suspect]
     Active Substance: METHOTREXATE
     Dosage: 15 MG, QD, 1 EVERY 1 DAYS DOSE FORM: UNKNOWN
     Route: 048
  68. METHOTREXATE [Suspect]
     Active Substance: METHOTREXATE
     Dosage: 15 MG, DOSE FORM:UNKNOWN
     Route: 048
  69. METHOTREXATE [Suspect]
     Active Substance: METHOTREXATE
     Dosage: 2 G, 1 EVERY 1 DAYS DOSE FORM: UNKNOWN ROUTE:UNKNOWN
     Route: 065
  70. METHOTREXATE [Suspect]
     Active Substance: METHOTREXATE
     Dosage: 2 DOSAGE FORM, 1 EVERY 1 DAYS DOSE FORM: UNKNOWN
     Route: 048
  71. METHOTREXATE [Suspect]
     Active Substance: METHOTREXATE
     Dosage: 2 DOSAGE FORM, 1 EVERY 1 DAYS DOSE FORM: UNKNOWN ROUTE:UNKNOWN
     Route: 065
  72. METHOTREXATE [Suspect]
     Active Substance: METHOTREXATE
     Dosage: 2 DOSAGE FORM, 1 EVERY 1 DAYS DOSE FORM: UNKNOWN ROUTE:UNKNOWN
     Route: 065
  73. METHOTREXATE [Suspect]
     Active Substance: METHOTREXATE
     Dosage: 20 MG, 1 EVERY 1 DAYS DOSE FORM: UNKNOWN ROUTE:UNKNOWN
     Route: 065
  74. METHOTREXATE [Suspect]
     Active Substance: METHOTREXATE
     Dosage: 20 MG, 1 EVERY 1 DAYS DOSE FORM: UNKNOWN ROUTE:UNKNOWN
     Route: 065
  75. METHOTREXATE [Suspect]
     Active Substance: METHOTREXATE
     Dosage: 20 MG, 1 EVERY 1 DAYS DOSE FORM: UNKNOWN ROUTE:UNKNOWN
     Route: 065
  76. METHOTREXATE [Suspect]
     Active Substance: METHOTREXATE
     Dosage: 20 MG, QD, 1 EVERY 1 DAYS DOSE FORM: UNKNOWN
     Route: 048
  77. METHOTREXATE [Suspect]
     Active Substance: METHOTREXATE
     Dosage: 20 MG, QD, 1 EVERY 1 DAYS DOSE FORM: UNKNOWN
     Route: 048
  78. METHOTREXATE [Suspect]
     Active Substance: METHOTREXATE
     Dosage: 20 MG, QD, 1 EVERY 1 DAYS DOSE FORM: UNKNOWN
     Route: 048
  79. METHOTREXATE [Suspect]
     Active Substance: METHOTREXATE
     Dosage: 20 MG, QD, 1 EVERY 1 DAYS DOSE FORM: UNKNOWN
     Route: 065
  80. METHOTREXATE [Suspect]
     Active Substance: METHOTREXATE
     Dosage: 20 MG, DOSE FORM:UNKNOWN
     Route: 048
  81. METHOTREXATE [Suspect]
     Active Substance: METHOTREXATE
     Dosage: 20 MG, DOSE FORM:UNKNOWN ROUTE: UNKNOWN
     Route: 065
  82. METHOTREXATE [Suspect]
     Active Substance: METHOTREXATE
     Dosage: 20 MG, DOSE FORM:UNKNOWN ROUTE:INTRA ARTERIAL
     Route: 013
  83. METHOTREXATE [Suspect]
     Active Substance: METHOTREXATE
     Dosage: 200 MG, DOSE FORM:UNKNOWN
     Route: 048
  84. METHOTREXATE [Suspect]
     Active Substance: METHOTREXATE
     Dosage: 25 MG, 1 EVERY 1 DAYS DOSE FORM: UNKNOWN ROUTE:UNKNOWN
     Route: 065
  85. METHOTREXATE [Suspect]
     Active Substance: METHOTREXATE
     Dosage: 25 MG, QD, 1 EVERY 1 DAYS DOSE FORM:  UNKNOWN ROUTE: UNKNOWN
     Route: 065
  86. METHOTREXATE [Suspect]
     Active Substance: METHOTREXATE
     Dosage: 25 MG, QD, 1 EVERY 1 DAYS DOSE FORM: UNKNOWN
     Route: 048
  87. METHOTREXATE [Suspect]
     Active Substance: METHOTREXATE
     Dosage: 25 MG, QD, 1 EVERY 1 DAYS DOSE FORM: UNKNOWN
     Route: 048
  88. METHOTREXATE [Suspect]
     Active Substance: METHOTREXATE
     Dosage: 25 MG, QD, 1 EVERY 1 DAYS DOSE FORM: UNKNOWN
     Route: 048
  89. METHOTREXATE [Suspect]
     Active Substance: METHOTREXATE
     Dosage: 25 MG, DOSE FORM: SOLUTION  INTRA- ARTERIAL
     Route: 058
  90. METHOTREXATE [Suspect]
     Active Substance: METHOTREXATE
     Dosage: 25 MG, DOSE FORM:UNKNOWN
     Route: 013
  91. METHOTREXATE [Suspect]
     Active Substance: METHOTREXATE
     Dosage: 25 MG, DOSE FORM:UNKNOWN
     Route: 048
  92. METHOTREXATE [Suspect]
     Active Substance: METHOTREXATE
     Dosage: 25 MG, DOSE FORM:UNKNOWN
     Route: 048
  93. METHOTREXATE [Suspect]
     Active Substance: METHOTREXATE
     Dosage: 25 MG, DOSE FORM:UNKNOWN
     Route: 058
  94. METHOTREXATE [Suspect]
     Active Substance: METHOTREXATE
     Indication: Rheumatoid arthritis
     Dosage: 25 MG, DOSE FORM:UNKNOWN ROUTE:INTRA ARTERIAL
     Route: 013
  95. METHOTREXATE [Suspect]
     Active Substance: METHOTREXATE
     Dosage: 25 MG, DOSE FORM:UNKNOWN ROUTE:INTRA ARTERIAL
     Route: 013
  96. METHOTREXATE [Suspect]
     Active Substance: METHOTREXATE
     Dosage: 25 MG, DOSE FORM:UNKNOWN ROUTE:INTRA ARTERIAL
     Route: 013
  97. METHOTREXATE [Suspect]
     Active Substance: METHOTREXATE
     Dosage: 25 MG, DOSE FORM:UNKNOWN ROUTE:INTRA ARTERIAL
     Route: 013
  98. METHOTREXATE [Suspect]
     Active Substance: METHOTREXATE
     Dosage: 25 MG, DOSE FORM:UNKNOWN ROUTE:INTRA ARTERIAL
     Route: 058
  99. METHOTREXATE [Suspect]
     Active Substance: METHOTREXATE
     Dosage: 40 MG, QD, 1 EVERY 1 DAYS DOSE FORM: UNKNOWN ROUTE:UNKNOWN
     Route: 065
  100. METHOTREXATE [Suspect]
     Active Substance: METHOTREXATE
     Dosage: 50 MG, QD, 1 EVERY 1 DAYS DOSE FORM: UNKNOWN
     Route: 048
  101. METHOTREXATE [Suspect]
     Active Substance: METHOTREXATE
     Dosage: UNK, QD
     Route: 065
  102. METHOTREXATE [Suspect]
     Active Substance: METHOTREXATE
     Dosage: 1 G, DOSE FORM:UNKNOWN
     Route: 048
  103. METHOTREXATE [Suspect]
     Active Substance: METHOTREXATE
     Dosage: UNK, DOSE FORM:UNKNOWN
     Route: 058
  104. MYCOPHENOLATE MOFETIL [Suspect]
     Active Substance: MYCOPHENOLATE MOFETIL
     Indication: Product used for unknown indication
     Dosage: UNK, ROUTE:UNKNOWN, CAPSULE
     Route: 065
  105. NAPROXEN [Suspect]
     Active Substance: NAPROXEN
     Indication: Product used for unknown indication
     Dosage: 100 MG, DOSE FORM:TABLET (ENTERIC COATED) ROUTE:UNKNOWN
     Route: 065
  106. PANTOPRAZOLE [Suspect]
     Active Substance: PANTOPRAZOLE
     Indication: Product used for unknown indication
     Dosage: UNK, DOSE FORM:TABLET (DELAYED- RELEASE) ROUTE: INTRACARDIAC
     Route: 016
  107. RITUXIMAB [Suspect]
     Active Substance: RITUXIMAB
     Dosage: 350 MG
     Route: 065
  108. RITUXIMAB [Suspect]
     Active Substance: RITUXIMAB
     Dosage: 350 MG, DOSE FORM:UNKNOWN ROUTE: UNKNOWN
     Route: 065
  109. RITUXIMAB [Suspect]
     Active Substance: RITUXIMAB
     Dosage: 350 MG, DOSE FORM:UNKNOWN ROUTE: UNKNOWN
     Route: 065
  110. RITUXIMAB [Suspect]
     Active Substance: RITUXIMAB
     Dosage: UNK
     Route: 058
  111. RITUXIMAB [Suspect]
     Active Substance: RITUXIMAB
     Dosage: UNK, DOSE FORM: UNKNOWN ROUTE:  INTRAVENOUS BOLUS
     Route: 040
  112. RITUXIMAB [Suspect]
     Active Substance: RITUXIMAB
     Indication: Rheumatoid arthritis
     Dosage: UNK, DOSE FORM: UNKNOWN ROUTE: INTRAVENOUS BOLUS
     Route: 040
  113. RITUXIMAB [Suspect]
     Active Substance: RITUXIMAB
     Dosage: UNK, DOSE FORM: UNKNOWN ROUTE: INTRAVENOUS BOLUS
     Route: 040
  114. RITUXIMAB [Suspect]
     Active Substance: RITUXIMAB
     Dosage: UNK, DOSE FORM:UNKNOWN
     Route: 058
  115. RITUXIMAB [Suspect]
     Active Substance: RITUXIMAB
     Dosage: UNK, DOSE FORM:UNKNOWN
     Route: 058
  116. RITUXIMAB [Suspect]
     Active Substance: RITUXIMAB
     Dosage: UNK, DOSE FORM:UNKNOWN
     Route: 058
  117. RITUXIMAB [Suspect]
     Active Substance: RITUXIMAB
     Dosage: UNK, DOSE FORM:UNKNOWN
     Route: 065
  118. RITUXIMAB [Suspect]
     Active Substance: RITUXIMAB
     Dosage: UNK, DOSE FORM:UNKNOWN
     Route: 065
  119. RITUXIMAB [Suspect]
     Active Substance: RITUXIMAB
     Dosage: UNK, DOSE FORM:UNKNOWN ROUTE: UNKNOWN
     Route: 065
  120. RITUXIMAB [Suspect]
     Active Substance: RITUXIMAB
     Dosage: UNK, DOSE FORM:UNKNOWN ROUTE: UNKNOWN
     Route: 065
  121. RITUXIMAB [Suspect]
     Active Substance: RITUXIMAB
     Dosage: UNK, DOSE FORM:UNKNOWN ROUTE: UNKNOWN
     Route: 065
  122. RITUXIMAB [Suspect]
     Active Substance: RITUXIMAB
     Dosage: UNK, ROUTE:INTRAVENOUS BOLUS
     Route: 040
  123. RITUXIMAB [Suspect]
     Active Substance: RITUXIMAB
     Dosage: UNK, ROUTE:INTRAVENOUS BOLUS
     Route: 040
  124. TOPAMAX [Suspect]
     Active Substance: TOPIRAMATE
     Indication: Migraine
     Dosage: 3 MG, QD, 1 EVERY 1 DAYS DOSE FORM: NOT SPECIFIED ROUTE:UNKNOWN
     Route: 065
  125. VITAMIN C [Suspect]
     Active Substance: ASCORBIC ACID
     Indication: Product used for unknown indication
     Dosage: 1000 MG, ROUTE:UNKNOWN
     Route: 065
  126. VITAMIN C [Suspect]
     Active Substance: ASCORBIC ACID
     Dosage: 1000 MG, ROUTE:UNKNOWN
     Route: 065
  127. VITAMIN C [Suspect]
     Active Substance: ASCORBIC ACID
     Dosage: 1000 MG, ROUTE:UNKNOWN
     Route: 065
  128. VOLTAREN [Suspect]
     Active Substance: DICLOFENAC SODIUM
     Dosage: 50 MG, DOSE FORM: UNKNOWN, ROUTE: UNKNOWN
     Route: 065
  129. VOLTAREN [Suspect]
     Active Substance: DICLOFENAC SODIUM
     Dosage: 50 MG, DOSE FORM: UNKNOWN, ROUTE: UNKNOWN
     Route: 065
  130. VOLTAREN [Suspect]
     Active Substance: DICLOFENAC SODIUM
     Dosage: UNK, DOSE FORM: UNKNOWN, ROUTE:  UNKNOWN
     Route: 065
  131. VOLTAREN [Suspect]
     Active Substance: DICLOFENAC SODIUM
     Dosage: UNK, DOSE FORM: UNKNOWN, ROUTE: UNKNOWN
     Route: 065
  132. VOLTAREN [Suspect]
     Active Substance: DICLOFENAC SODIUM
     Indication: Product used for unknown indication
     Dosage: UNK, ROUTE:UNKNOWN
     Route: 065
  133. VOLTAREN [Suspect]
     Active Substance: DICLOFENAC SODIUM
     Dosage: UNK, ROUTE:UNKNOWN
     Route: 065
  134. VOLTAREN [Suspect]
     Active Substance: DICLOFENAC SODIUM
     Dosage: UNK, ROUTE:UNKNOWN
     Route: 065
  135. VOLTAREN [Suspect]
     Active Substance: DICLOFENAC SODIUM
     Dosage: UNK, ROUTE:UNKNOWN
     Route: 065
  136. VOLTAREN [Suspect]
     Active Substance: DICLOFENAC SODIUM
     Dosage: UNK, ROUTE:UNKNOWN, FORMULATION:  UNKNOW
     Route: 065

REACTIONS (54)
  - Type 2 diabetes mellitus [Fatal]
  - Migraine [Fatal]
  - Rheumatic fever [Fatal]
  - Headache [Fatal]
  - Hypersensitivity [Fatal]
  - Gastrointestinal disorder [Fatal]
  - Psoriasis [Fatal]
  - Myositis [Fatal]
  - Sleep disorder due to a general medical condition [Fatal]
  - Pain in extremity [Fatal]
  - Pruritus [Fatal]
  - Stomatitis [Fatal]
  - Ill-defined disorder [Fatal]
  - Paraesthesia [Fatal]
  - Osteoarthritis [Fatal]
  - Pain [Fatal]
  - Oedema peripheral [Fatal]
  - Weight decreased [Fatal]
  - Sinusitis [Fatal]
  - Rash [Fatal]
  - Nail disorder [Fatal]
  - Sleep disorder [Fatal]
  - Pustular psoriasis [Fatal]
  - X-ray abnormal [Fatal]
  - Wound infection [Fatal]
  - Weight increased [Fatal]
  - C-reactive protein increased [Fatal]
  - Vomiting [Fatal]
  - Swollen joint count increased [Fatal]
  - Subcutaneous drug absorption impaired [Fatal]
  - Muscle injury [Fatal]
  - Muscle spasms [Fatal]
  - Mobility decreased [Fatal]
  - Musculoskeletal stiffness [Fatal]
  - Psoriatic arthropathy [Fatal]
  - Peripheral swelling [Fatal]
  - Taste disorder [Fatal]
  - Rash vesicular [Fatal]
  - Urticaria [Fatal]
  - Pneumonia [Fatal]
  - Gait disturbance [Fatal]
  - Pericarditis [Fatal]
  - Night sweats [Fatal]
  - Obesity [Fatal]
  - Grip strength decreased [Fatal]
  - General symptom [Fatal]
  - Peripheral venous disease [Fatal]
  - Pyrexia [Fatal]
  - Nasopharyngitis [Fatal]
  - Swelling [Fatal]
  - Product use in unapproved indication [Fatal]
  - Intentional product use issue [Fatal]
  - Product quality issue [Fatal]
  - Wheezing [Fatal]
